FAERS Safety Report 8985083 (Version 2)
Quarter: 2013Q1

REPORT INFORMATION
  Report Type: Spontaneous
  Country: US (occurrence: US)
  Receive Date: 20121226
  Receipt Date: 20130131
  Transmission Date: 20140127
  Serious: Yes (Other)
  Sender: FDA-Public Use
  Company Number: US-PFIZER INC-2012323592

PATIENT
  Age: 55 Year
  Sex: Female
  Weight: 79.37 kg

DRUGS (1)
  1. PRISTIQ [Suspect]
     Indication: ANXIETY
     Dosage: 50 MG, 1X/DAY
     Dates: start: 20120901

REACTIONS (14)
  - Off label use [Unknown]
  - Bipolar disorder [Unknown]
  - Mania [Unknown]
  - Depression [Unknown]
  - Affect lability [Unknown]
  - Disturbance in attention [Unknown]
  - Memory impairment [Unknown]
  - Hypertension [Unknown]
  - Withdrawal syndrome [Unknown]
  - Anxiety [Unknown]
  - Insomnia [Unknown]
  - Somnolence [Unknown]
  - Abnormal dreams [Unknown]
  - Drug ineffective for unapproved indication [Unknown]
